FAERS Safety Report 14657078 (Version 7)
Quarter: 2018Q2

REPORT INFORMATION
  Report Type: Report from Study
  Country: US (occurrence: US)
  Receive Date: 20180319
  Receipt Date: 20180621
  Transmission Date: 20180711
  Serious: Yes (Death, Hospitalization)
  Sender: FDA-Public Use
  Company Number: US-ACTELION-A-US2017-161619

PATIENT
  Age: 74 Year
  Sex: Female
  Weight: 99.77 kg

DRUGS (12)
  1. WARFARIN [Concomitant]
     Active Substance: WARFARIN
  2. UPTRAVI [Suspect]
     Active Substance: SELEXIPAG
     Dosage: 1400 MCG, BID
     Route: 048
  3. UPTRAVI [Suspect]
     Active Substance: SELEXIPAG
     Dosage: 200 MCG, BID
     Route: 048
  4. DILTIAZEM. [Concomitant]
     Active Substance: DILTIAZEM
  5. GLYBURIDE. [Concomitant]
     Active Substance: GLYBURIDE
  6. UPTRAVI [Suspect]
     Active Substance: SELEXIPAG
     Dosage: 400 MCG, BID
     Route: 048
     Dates: start: 20171028
  7. SILDENAFIL. [Concomitant]
     Active Substance: SILDENAFIL
  8. METOPROLOL. [Concomitant]
     Active Substance: METOPROLOL
  9. METFORMIN [Concomitant]
     Active Substance: METFORMIN HYDROCHLORIDE
  10. UPTRAVI [Suspect]
     Active Substance: SELEXIPAG
     Dosage: 1200 MCG, BID
     Route: 048
     Dates: start: 20171028
  11. GLIMEPIRIDE. [Concomitant]
     Active Substance: GLIMEPIRIDE
  12. UPTRAVI [Suspect]
     Active Substance: SELEXIPAG
     Indication: PULMONARY ARTERIAL HYPERTENSION
     Dosage: 1600 MCG, BID
     Route: 048

REACTIONS (22)
  - Blood glucose abnormal [Unknown]
  - Peripheral swelling [Unknown]
  - Diarrhoea [Unknown]
  - Death [Fatal]
  - Atrial fibrillation [Unknown]
  - Heart rate abnormal [Unknown]
  - Blood glucose increased [Unknown]
  - Tremor [Unknown]
  - Drug dose omission [Unknown]
  - Blood glucose fluctuation [Unknown]
  - Feeling abnormal [Recovering/Resolving]
  - Abdominal discomfort [Recovering/Resolving]
  - Fatigue [Unknown]
  - Fluid retention [Unknown]
  - Dizziness [Unknown]
  - Dyspnoea [Unknown]
  - Asthenia [Recovering/Resolving]
  - Bedridden [Unknown]
  - Lung disorder [Unknown]
  - Gait disturbance [Recovering/Resolving]
  - Cough [Recovering/Resolving]
  - Malaise [Unknown]

NARRATIVE: CASE EVENT DATE: 20180611
